FAERS Safety Report 8559158-5 (Version None)
Quarter: 2012Q3

REPORT INFORMATION
  Report Type: 
  Country: None (occurrence: None)
  Receive Date: 20120802
  Receipt Date: 20120723
  Transmission Date: 20120928
  Serious: Yes (Other)
  Sender: FDA-Public Use
  Company Number: US-009507513-1207USA010764

PATIENT

DRUGS (6)
  1. PRAVASTATIN SODIUM [Concomitant]
  2. LISINOPRIL [Concomitant]
     Route: 048
  3. ASPIRIN [Concomitant]
  4. LANSOPRAZOLE [Concomitant]
  5. ZOCOR [Suspect]
     Dosage: 1 DF, QD
     Route: 048
  6. QUININE SULFATE [Concomitant]

REACTIONS (11)
  - EYELID PTOSIS [None]
  - NEUROPATHY PERIPHERAL [None]
  - SENSORY LOSS [None]
  - BLEPHARITIS [None]
  - MUSCULOSKELETAL STIFFNESS [None]
  - MUSCULAR WEAKNESS [None]
  - MUSCLE SPASMS [None]
  - SLEEP DISORDER [None]
  - MUSCLE RIGIDITY [None]
  - CONVULSION [None]
  - HYPOAESTHESIA [None]
